FAERS Safety Report 8523501-3 (Version None)
Quarter: 2012Q3

REPORT INFORMATION
  Report Type: 
  Country: None (occurrence: None)
  Receive Date: 20120709
  Receipt Date: 20120621
  Transmission Date: 20120928
  Serious: Yes (Other)
  Sender: FDA-Public Use
  Company Number: DKLU1079546

PATIENT
  Age: 44 Year
  Sex: Male

DRUGS (11)
  1. TENOFOVIR (TENOFOVIR) [Concomitant]
  2. LAMIVUDINE + ZIDOVUDINE [Concomitant]
  3. VALPROIC (VALPROIC ACID) [Concomitant]
  4. KALETRA [Concomitant]
  5. TRUVADA [Concomitant]
  6. ETRAVIRINE (ETRAVIRINE) [Suspect]
     Indication: HIV INFECTION
     Dates: start: 20100601
  7. RALTEGRAVIR (RALTEGRAVIS) [Concomitant]
  8. ONFI [Suspect]
     Indication: CONVULSION
     Dosage: SEE IMAGE
     Dates: start: 20101101
  9. ONFI [Suspect]
     Indication: CONVULSION
     Dosage: SEE IMAGE
     Dates: start: 20081001, end: 20081201
  10. ONFI [Suspect]
     Indication: CONVULSION
     Dosage: SEE IMAGE
     Dates: start: 20110201
  11. ONFI [Suspect]
     Indication: CONVULSION
     Dosage: SEE IMAGE
     Dates: start: 20101201, end: 20110201

REACTIONS (8)
  - DYSARTHRIA [None]
  - ATAXIA [None]
  - CONVULSION [None]
  - GAIT DISTURBANCE [None]
  - ASTHENIA [None]
  - DRUG INTERACTION [None]
  - SOMNOLENCE [None]
  - DRUG RESISTANCE [None]
